FAERS Safety Report 9120168 (Version 1)
Quarter: 2013Q1

REPORT INFORMATION
  Report Type: Report from Study
  Country: CA (occurrence: CA)
  Receive Date: 20130226
  Receipt Date: 20130226
  Transmission Date: 20140127
  Serious: Yes (Hospitalization)
  Sender: FDA-Public Use
  Company Number: CA-JNJFOC-20130214027

PATIENT
  Age: 55 Year
  Sex: Male
  Weight: 90 kg

DRUGS (7)
  1. REMICADE [Suspect]
     Indication: CROHN^S DISEASE
     Route: 042
     Dates: start: 20120821
  2. OMEPRAZOLE [Concomitant]
     Route: 065
  3. SALOFALK [Concomitant]
     Dosage: 4 CAPS
     Route: 065
  4. METOPROLOL [Concomitant]
     Route: 065
  5. LISINOPRIL  + HYDROCHLOROTHIAZIDE [Concomitant]
     Dosage: 20/12.5 MG
     Route: 065
  6. ACETYLSALICYLIC ACID [Concomitant]
     Route: 065
  7. PLAVIX [Concomitant]
     Dosage: FOR 1 YEAR
     Route: 065

REACTIONS (1)
  - Angina pectoris [Recovering/Resolving]
